FAERS Safety Report 5118799-8 (Version None)
Quarter: 2006Q3

REPORT INFORMATION
  Report Type: 
  Country: None (occurrence: None)
  Receive Date: 20060927
  Receipt Date: 20060913
  Transmission Date: 20061208
  Serious: Yes (Other)
  Sender: FDA-Public Use
  Company Number: DSA_81687_2006

PATIENT
  Age: 34 Year
  Sex: Female
  Weight: 45.3597 kg

DRUGS (13)
  1. XYREM [Suspect]
     Indication: CATAPLEXY
     Dosage: 4.5 G TWICE NIGHTLY PO
     Route: 048
  2. XYREM [Suspect]
     Indication: NARCOLEPSY
     Dosage: 4.5 G TWICE NIGHTLY PO
     Route: 048
  3. FLONASE [Concomitant]
  4. PROVIGIL [Concomitant]
  5. NEURONTIN [Concomitant]
  6. MIRAPEX [Concomitant]
  7. NEXIUM [Concomitant]
  8. CYMBALTA [Concomitant]
  9. SYNTHROID [Concomitant]
  10. VITAMIN E [Concomitant]
  11. TOPAMAX [Concomitant]
  12. IMITREX /01044801/ [Concomitant]
  13. BIRTH CONTROL PILLS [Concomitant]

REACTIONS (5)
  - ANOREXIA [None]
  - CONDITION AGGRAVATED [None]
  - DEPRESSION [None]
  - POST-TRAUMATIC STRESS DISORDER [None]
  - WEIGHT DECREASED [None]
